FAERS Safety Report 10180859 (Version 2)
Quarter: 2014Q4

REPORT INFORMATION
  Report Type: Spontaneous
  Country: US (occurrence: US)
  Receive Date: 20140519
  Receipt Date: 20141006
  Transmission Date: 20150528
  Serious: No
  Sender: FDA-Public Use
  Company Number: US-AMGEN INC.-USASP2014013185

PATIENT
  Age: 86 Year
  Sex: Female

DRUGS (2)
  1. PROLIA [Suspect]
     Active Substance: DENOSUMAB
     Indication: OSTEOPOROSIS POSTMENOPAUSAL
     Dosage: UNK
     Route: 065
     Dates: start: 201307
  2. PROLIA [Suspect]
     Active Substance: DENOSUMAB

REACTIONS (5)
  - Loose tooth [Unknown]
  - Bone pain [Unknown]
  - Hypoacusis [Unknown]
  - Jaw disorder [Unknown]
  - Fatigue [Unknown]
